FAERS Safety Report 5964903-9 (Version None)
Quarter: 2008Q4

REPORT INFORMATION
  Report Type: 
  Country: None (occurrence: None)
  Receive Date: 20081121
  Receipt Date: 20081110
  Transmission Date: 20090506
  Serious: Yes (Other)
  Sender: FDA-Public Use
  Company Number: IMP_03795_2008

PATIENT
  Sex: Male
  Weight: 240 kg

DRUGS (3)
  1. BUDEPRION (NOT SPECIFIED) [Suspect]
     Indication: DEPRESSION
     Dosage: 300 MG QD ORAL
     Route: 048
     Dates: start: 20070501, end: 20071012
  2. KLONOPIN [Concomitant]
  3. LAMICTAL [Concomitant]

REACTIONS (9)
  - ALCOHOL USE [None]
  - DEPRESSION [None]
  - DISEASE RECURRENCE [None]
  - DISTURBANCE IN ATTENTION [None]
  - IRRITABILITY [None]
  - LOSS OF LIBIDO [None]
  - SUICIDAL IDEATION [None]
  - THERAPEUTIC RESPONSE UNEXPECTED WITH DRUG SUBSTITUTION [None]
  - WEIGHT INCREASED [None]
